FAERS Safety Report 10489393 (Version 1)
Quarter: 2014Q3

REPORT INFORMATION
  Report Type: Spontaneous
  Country: JP (occurrence: None)
  Receive Date: 20140930
  Receipt Date: 20140930
  Transmission Date: 20150326
  Serious: Yes (Other)
  Sender: FDA-Public Use
  Company Number: 2014HINLIT0892

PATIENT
  Age: 35 Year
  Sex: Female

DRUGS (8)
  1. NEVIRAPINE (NEVIRAPINE) [Concomitant]
     Active Substance: NEVIRAPINE
  2. TENOFOVIR (TENOFOVIR) UNKNOWN [Concomitant]
     Active Substance: TENOFOVIR
  3. ETRAVIRINE (ETRAVIRINE) [Concomitant]
  4. RALTEGRAVIR (RALEGRAVIR) [Concomitant]
  5. ZIDOVUDINE (ZIDOVUDINE) [Concomitant]
     Active Substance: ZIDOVUDINE
  6. STAVUDINE. [Suspect]
     Active Substance: STAVUDINE
     Indication: ANTIRETROVIRAL THERAPY
     Dates: start: 2000
  7. DIDANOSINE. [Suspect]
     Active Substance: DIDANOSINE
     Indication: ANTIRETROVIRAL THERAPY
     Dates: start: 2000
  8. LAMIVUDINE (LAMIVUDINE) [Concomitant]
     Active Substance: LAMIVUDINE

REACTIONS (11)
  - Ascites [None]
  - Haematochezia [None]
  - Anaemia [None]
  - Refusal of treatment by patient [None]
  - Varices oesophageal [None]
  - Portal hypertension [None]
  - Hepatic enzyme increased [None]
  - Heart rate increased [None]
  - Splenomegaly [None]
  - Weight increased [None]
  - Hepatic atrophy [None]
